FAERS Safety Report 6793334-7 (Version None)
Quarter: 2010Q2

REPORT INFORMATION
  Report Type: 
  Country: None (occurrence: None)
  Receive Date: 20100624
  Receipt Date: 20091203
  Transmission Date: 20101027
  Serious: Yes (Other)
  Sender: FDA-Public Use
  Company Number: US-MYLANLABS-2009S1020708

PATIENT
  Age: 51 Year
  Sex: Male

DRUGS (11)
  1. CLOZAPINE [Suspect]
     Indication: SCHIZOPHRENIA
     Route: 048
     Dates: end: 20091125
  2. CLOZAPINE [Suspect]
     Indication: MENTAL DISORDER
     Route: 048
     Dates: end: 20091125
  3. CLOZAPINE [Suspect]
     Route: 048
     Dates: start: 20091202
  4. CLOZAPINE [Suspect]
     Route: 048
     Dates: start: 20091202
  5. CLOZAPINE [Suspect]
     Route: 048
     Dates: end: 20091125
  6. CLOZAPINE [Suspect]
     Route: 048
     Dates: end: 20091125
  7. CLOZAPINE [Suspect]
     Route: 048
     Dates: start: 20091202
  8. CLOZAPINE [Suspect]
     Route: 048
     Dates: start: 20091202
  9. LEXAPRO [Concomitant]
  10. SEROQUEL [Concomitant]
  11. ATIVAN [Concomitant]

REACTIONS (2)
  - GRANULOCYTOPENIA [None]
  - LEUKOPENIA [None]
